FAERS Safety Report 8197817 (Version 4)
Quarter: 2013Q1

REPORT INFORMATION
  Report Type: Spontaneous
  Country: CA (occurrence: CA)
  Receive Date: 20111025
  Receipt Date: 20130308
  Transmission Date: 20140127
  Serious: Yes (Hospitalization)
  Sender: FDA-Public Use
  Company Number: CA-JNJFOC-20111006780

PATIENT
  Age: 61 None
  Sex: Female

DRUGS (1)
  1. REMICADE [Suspect]
     Indication: CROHN^S DISEASE
     Route: 042
     Dates: start: 2005, end: 201109

REACTIONS (7)
  - Thrombosis [Recovered/Resolved]
  - Nerve injury [Recovered/Resolved]
  - Peroneal nerve palsy [Recovered/Resolved]
  - Osteoarthritis [Recovered/Resolved]
  - Infection [Recovered/Resolved]
  - Compartment syndrome [Recovered/Resolved]
  - Vascular occlusion [Recovered/Resolved]
